FAERS Safety Report 24745208 (Version 4)
Quarter: 2025Q2

REPORT INFORMATION
  Report Type: Spontaneous
  Country: JP (occurrence: JP)
  Receive Date: 20241217
  Receipt Date: 20250612
  Transmission Date: 20250717
  Serious: Yes (Life-Threatening, Hospitalization)
  Sender: NOVARTIS
  Company Number: JP-002147023-NVSJ2024JP014603

PATIENT

DRUGS (6)
  1. LUTATHERA [Suspect]
     Active Substance: LUTETIUM OXODOTREOTIDE LU-177
     Indication: Pancreatic neuroendocrine tumour
     Route: 042
     Dates: start: 20241128
  2. LUTATHERA [Suspect]
     Active Substance: LUTETIUM OXODOTREOTIDE LU-177
     Route: 042
     Dates: start: 20250424, end: 20250424
  3. ARGININE\LYSINE [Suspect]
     Active Substance: ARGININE\LYSINE
     Indication: Product used for unknown indication
     Route: 042
     Dates: start: 20241128
  4. ARGININE\LYSINE [Suspect]
     Active Substance: ARGININE\LYSINE
     Route: 042
     Dates: start: 20250424, end: 20250424
  5. SANDOSTATIN [Concomitant]
     Active Substance: OCTREOTIDE ACETATE
     Indication: Vipoma
     Route: 058
  6. SANDOSTATIN LAR DEPOT [Concomitant]
     Active Substance: OCTREOTIDE ACETATE
     Indication: Vipoma
     Route: 030

REACTIONS (9)
  - Diarrhoea [Recovered/Resolved]
  - Tumour lysis syndrome [Recovering/Resolving]
  - Gastrointestinal disorder [Unknown]
  - General physical health deterioration [Unknown]
  - Renal failure [Recovering/Resolving]
  - Oedema peripheral [Unknown]
  - Pharmacophobia [Unknown]
  - Malaise [Unknown]
  - Inappropriate schedule of product administration [Unknown]
